FAERS Safety Report 19729827 (Version 1)
Quarter: 2021Q3

REPORT INFORMATION
  Report Type: Spontaneous
  Country: CN (occurrence: CN)
  Receive Date: 20210820
  Receipt Date: 20210820
  Transmission Date: 20211014
  Serious: Yes (Hospitalization)
  Sender: FDA-Public Use
  Company Number: CN-ASTRAZENECA-2021A685226

PATIENT
  Age: 24349 Day
  Sex: Male

DRUGS (1)
  1. DURVALUMAB. [Suspect]
     Active Substance: DURVALUMAB
     Indication: NEOPLASM
     Route: 042
     Dates: start: 20210729, end: 20210729

REACTIONS (2)
  - Pruritus [Recovered/Resolved]
  - Erythema annulare [Recovering/Resolving]

NARRATIVE: CASE EVENT DATE: 20210730
